FAERS Safety Report 8987948 (Version 2)
Quarter: 2013Q1

REPORT INFORMATION
  Report Type: Spontaneous
  Country: US (occurrence: US)
  Receive Date: 20121227
  Receipt Date: 20130314
  Transmission Date: 20140127
  Serious: Yes (Other)
  Sender: FDA-Public Use
  Company Number: US-ABBOTT-12P-163-1023529-00

PATIENT
  Sex: Female
  Weight: 62.65 kg

DRUGS (1)
  1. HUMIRA [Suspect]
     Indication: RHEUMATOID ARTHRITIS
     Dates: start: 20110216, end: 20130224

REACTIONS (5)
  - Retinal tear [Recovered/Resolved]
  - Injection site pain [Recovered/Resolved]
  - Ear infection [Recovered/Resolved]
  - Bronchitis [Recovered/Resolved]
  - Medication error [Unknown]
